FAERS Safety Report 7231088-0 (Version None)
Quarter: 2011Q1

REPORT INFORMATION
  Report Type: 
  Country: None (occurrence: None)
  Receive Date: 20110118
  Receipt Date: 20110111
  Transmission Date: 20110831
  Serious: Yes (Other)
  Sender: FDA-Public Use
  Company Number: HU-ROCHE-752987

PATIENT
  Age: 69 Year
  Sex: Female

DRUGS (3)
  1. ROACTEMRA [Suspect]
     Dosage: FIRST INFUSION, ROUTE: IV INFUSION, DOSE AND FREQUENCY: NOT REPORTED
     Route: 042
  2. ROACTEMRA [Suspect]
     Dosage: SECOND INFUSION
     Route: 042
     Dates: start: 20110104
  3. ENBREL [Concomitant]

REACTIONS (5)
  - DIARRHOEA [None]
  - COUGH [None]
  - MUSCLE SPASMS [None]
  - TACHYCARDIA [None]
  - NAUSEA [None]
